FAERS Safety Report 21036749 (Version 3)
Quarter: 2022Q3

REPORT INFORMATION
  Report Type: Report from Study
  Country: CA (occurrence: CA)
  Receive Date: 20220702
  Receipt Date: 20220928
  Transmission Date: 20221027
  Serious: Yes (Other)
  Sender: FDA-Public Use
  Company Number: CA-BRISTOL-MYERS SQUIBB COMPANY-2022-030156

PATIENT
  Age: 78 Year
  Sex: Female
  Weight: 63.50 kg

DRUGS (1)
  1. ORENCIA [Suspect]
     Active Substance: ABATACEPT
     Indication: Rheumatoid arthritis
     Dosage: EXPIRY DATE (30-SEP-2024), BATCH NUMBER (1885043)
     Route: 042
     Dates: start: 20161110

REACTIONS (3)
  - Cataract [Unknown]
  - Inappropriate schedule of product administration [Recovered/Resolved]
  - Blood pressure diastolic increased [Not Recovered/Not Resolved]

NARRATIVE: CASE EVENT DATE: 20220101
